FAERS Safety Report 22104729 (Version 1)
Quarter: 2023Q1

REPORT INFORMATION
  Report Type: Spontaneous
  Country: US (occurrence: US)
  Receive Date: 20230316
  Receipt Date: 20230316
  Transmission Date: 20230418
  Serious: Yes (Disabling, Other)
  Sender: FDA-Public Use
  Company Number: US-SHIONOGI, INC-2023000573

PATIENT
  Sex: Female

DRUGS (1)
  1. FETROJA [Suspect]
     Active Substance: CEFIDEROCOL SULFATE TOSYLATE
     Indication: Pseudomonas infection
     Dosage: 2 G, 8 HOUR
     Route: 042
     Dates: start: 20221116, end: 20221210

REACTIONS (1)
  - Blindness [Unknown]
